FAERS Safety Report 11193564 (Version 1)
Quarter: 2015Q2

REPORT INFORMATION
  Report Type: Spontaneous
  Country: FR (occurrence: FR)
  Receive Date: 20150616
  Receipt Date: 20150616
  Transmission Date: 20150821
  Serious: Yes (Death, Hospitalization, Other)
  Sender: FDA-Public Use
  Company Number: FR-ELI_LILLY_AND_COMPANY-FR201506002948

PATIENT
  Age: 64 Year
  Sex: Female

DRUGS (13)
  1. DUROGESIC [Concomitant]
     Active Substance: FENTANYL
     Dosage: 37 U, OTHER
     Route: 065
  2. DOLIPRANE [Concomitant]
     Active Substance: ACETAMINOPHEN
     Dosage: 4 G, QD
     Route: 065
  3. ACTISKENAN [Concomitant]
     Active Substance: MORPHINE SULFATE
     Dosage: 5 MG, UNKNOWN
     Route: 065
  4. JAMYLENE                           /00061602/ [Concomitant]
     Dosage: 50 MG, UNKNOWN
     Route: 065
  5. FOLIC ACID. [Concomitant]
     Active Substance: FOLIC ACID
     Dosage: 0.8 MG, QD
     Route: 065
     Dates: start: 20150119
  6. PRIMPERAN [Concomitant]
     Active Substance: METOCLOPRAMIDE HYDROCHLORIDE
     Dosage: 10 MG, UNKNOWN
     Route: 065
  7. PROFENID LP [Concomitant]
     Active Substance: KETOPROFEN
     Dosage: 150 MG, BID
     Route: 065
  8. TRANSIPEG                          /00754501/ [Concomitant]
     Active Substance: POLYETHYLENE GLYCOL 3350
     Indication: LAXATIVE SUPPORTIVE CARE
     Dosage: UNK, UNKNOWN
     Route: 065
  9. CISPLATINE [Suspect]
     Active Substance: CISPLATIN
     Indication: NON-SMALL CELL LUNG CANCER STAGE IV
     Dosage: 108 MG, CYCLICAL
     Route: 042
     Dates: start: 20150119, end: 20150119
  10. LANSOYL [Concomitant]
     Active Substance: MINERAL OIL
     Dosage: UNK, UNKNOWN
     Route: 065
  11. ALIMTA [Suspect]
     Active Substance: PEMETREXED DISODIUM
     Indication: NON-SMALL CELL LUNG CANCER STAGE IV
     Dosage: 720 MG, CYCLICAL
     Route: 042
     Dates: start: 20150119
  12. CARBOPLATIN. [Concomitant]
     Active Substance: CARBOPLATIN
     Indication: NON-SMALL CELL LUNG CANCER STAGE IV
     Dosage: UNK, UNKNOWN
     Route: 065
  13. SOLUPRED                           /00016201/ [Concomitant]
     Active Substance: PREDNISOLONE
     Dosage: 60 MG, QD
     Route: 065
     Dates: start: 20150119, end: 20150126

REACTIONS (11)
  - Pneumonia [Unknown]
  - Asthenia [Unknown]
  - Nausea [Unknown]
  - Malignant neoplasm progression [Fatal]
  - Hypercalcaemia [Recovered/Resolved]
  - Lung disorder [Unknown]
  - Dehydration [Unknown]
  - Acute kidney injury [Recovered/Resolved]
  - General physical health deterioration [Unknown]
  - Vomiting [Recovered/Resolved]
  - Off label use [Unknown]

NARRATIVE: CASE EVENT DATE: 20150119
